FAERS Safety Report 5191718-4 (Version None)
Quarter: 2006Q4

REPORT INFORMATION
  Report Type: 
  Country: None (occurrence: None)
  Receive Date: 20061219
  Receipt Date: 20061204
  Transmission Date: 20070319
  Serious: Yes (Hospitalization, Other)
  Sender: FDA-Public Use
  Company Number: US-2004-036633

PATIENT
  Age: 63 Year
  Sex: Male
  Weight: 101.6 kg

DRUGS (7)
  1. LEUKINE [Suspect]
     Indication: CROHN'S DISEASE
     Dosage: 5 UG/KG, 1X/DAY, SUBCUTANEOUS
     Route: 058
     Dates: start: 20040910, end: 20041107
  2. PREDNISONE TAB [Concomitant]
  3. NITRO PATCH PATCH [Concomitant]
  4. ASPIRIN [Concomitant]
  5. ATENOLOL [Concomitant]
  6. PLAVIX [Concomitant]
  7. MULTIPLE VITAMINS (RETINOL) [Concomitant]

REACTIONS (13)
  - ANAEMIA [None]
  - ANGINA PECTORIS [None]
  - ARTERIOSCLEROSIS CORONARY ARTERY [None]
  - CORONARY ARTERY STENOSIS [None]
  - CROHN'S DISEASE [None]
  - DRUG INEFFECTIVE [None]
  - DYSPNOEA EXERTIONAL [None]
  - HYPOTENSION [None]
  - POST PROCEDURAL HAEMORRHAGE [None]
  - RASH GENERALISED [None]
  - SUPRAVENTRICULAR TACHYCARDIA [None]
  - URTICARIA [None]
  - VENTRICULAR EXTRASYSTOLES [None]
